FAERS Safety Report 8715495 (Version 3)
Quarter: 2013Q1

REPORT INFORMATION
  Report Type: Report from Study
  Country: CA (occurrence: CA)
  Receive Date: 20120809
  Receipt Date: 20130211
  Transmission Date: 20140127
  Serious: Yes (Hospitalization, Other)
  Sender: FDA-Public Use
  Company Number: CA-ROCHE-1097234

PATIENT
  Age: 55 Year
  Sex: Male
  Weight: 100 kg

DRUGS (7)
  1. TOCILIZUMAB [Suspect]
     Indication: RHEUMATOID ARTHRITIS
     Route: 042
     Dates: start: 20120426
  2. TOCILIZUMAB [Suspect]
     Route: 065
     Dates: start: 20120426
  3. TOCILIZUMAB [Suspect]
     Route: 042
     Dates: start: 20120731
  4. TOCILIZUMAB [Suspect]
     Route: 065
     Dates: start: 20130205
  5. PREDNISONE [Concomitant]
  6. OMEPRAZOLE [Concomitant]
  7. ACTONEL [Concomitant]

REACTIONS (14)
  - Pallor [Unknown]
  - Hyperhidrosis [Unknown]
  - Respiratory arrest [Recovered/Resolved]
  - Blood pressure decreased [Recovered/Resolved]
  - Pulse absent [Recovered/Resolved]
  - Foaming at mouth [Recovered/Resolved]
  - Eye movement disorder [Recovered/Resolved]
  - Diarrhoea haemorrhagic [Unknown]
  - Diarrhoea [Unknown]
  - Colitis [Unknown]
  - Pain in extremity [Unknown]
  - Dehydration [Unknown]
  - Weight increased [Not Recovered/Not Resolved]
  - Presyncope [Recovered/Resolved]
